FAERS Safety Report 7883365-8 (Version None)
Quarter: 2011Q4

REPORT INFORMATION
  Report Type: 
  Country: None (occurrence: None)
  Receive Date: 20111102
  Receipt Date: 20111102
  Transmission Date: 20120403
  Serious: No
  Sender: FDA-Public Use
  Company Number: None

PATIENT
  Sex: Female
  Weight: 88.45 kg

DRUGS (2)
  1. DIOVAN [Suspect]
     Indication: BLOOD PRESSURE INADEQUATELY CONTROLLED
     Dosage: 80 MG
     Dates: start: 20110226, end: 20110416
  2. DIOVAN [Suspect]
     Indication: RENAL DISORDER
     Dosage: 80 MG
     Dates: start: 20110226, end: 20110416

REACTIONS (8)
  - VERTIGO [None]
  - HYPERTENSION [None]
  - DISORIENTATION [None]
  - VISUAL IMPAIRMENT [None]
  - PAIN IN EXTREMITY [None]
  - BACK PAIN [None]
  - DIZZINESS [None]
  - ARTHRALGIA [None]
